FAERS Safety Report 21617059 (Version 1)
Quarter: 2022Q4

REPORT INFORMATION
  Report Type: Spontaneous
  Country: US (occurrence: US)
  Receive Date: 20221118
  Receipt Date: 20221118
  Transmission Date: 20230112
  Serious: No
  Sender: FDA-Public Use
  Company Number: US-BAUSCH-BL-2022-025211

PATIENT
  Age: 77 Year
  Sex: Female

DRUGS (1)
  1. TRETINOIN [Suspect]
     Active Substance: TRETINOIN
     Indication: Acne pustular
     Dosage: APPLYING PRODUCT ONCE DAILY
     Route: 061
     Dates: end: 202207

REACTIONS (6)
  - Acne pustular [Unknown]
  - Condition aggravated [Unknown]
  - Rash pruritic [Unknown]
  - Skin exfoliation [Unknown]
  - Drug ineffective [Unknown]
  - Therapy cessation [Unknown]

NARRATIVE: CASE EVENT DATE: 20220101
